FAERS Safety Report 6821568-1 (Version None)
Quarter: 2010Q3

REPORT INFORMATION
  Report Type: 
  Country: None (occurrence: None)
  Receive Date: 20100707
  Receipt Date: 20090612
  Transmission Date: 20110219
  Serious: No
  Sender: FDA-Public Use
  Company Number: US-PFIZER INC-2009162935

PATIENT
  Sex: Female
  Weight: 88.45 kg

DRUGS (3)
  1. SERTRALINE HCL [Suspect]
     Indication: DEPRESSION
     Dosage: 50 MG, 1X/DAY
     Dates: start: 20081210
  2. SERTRALINE [Suspect]
     Indication: DEPRESSION
     Dosage: 50 MG, 1X/DAY
     Dates: start: 20090107
  3. ATIVAN [Concomitant]
     Indication: ANXIETY
     Dosage: UNK

REACTIONS (2)
  - DYSPEPSIA [None]
  - MIGRAINE [None]
